FAERS Safety Report 4486213-1 (Version None)
Quarter: 2004Q4

REPORT INFORMATION
  Report Type: 
  Country: None (occurrence: None)
  Receive Date: 20041021
  Receipt Date: 20041006
  Transmission Date: 20050328
  Serious: Yes (Hospitalization)
  Sender: FDA-Public Use
  Company Number: 2004-BP-08104NB

PATIENT
  Age: 71 Year
  Sex: Male

DRUGS (10)
  1. MICARDIS [Suspect]
     Indication: HYPERTENSION
     Dosage: 20 MG (20 MG)
     Route: 048
     Dates: start: 20040728, end: 20040823
  2. DAONIL (GLIBENCLAMIDE) (TA) [Concomitant]
  3. BASEN (VOGLIBOSE) (TA) [Concomitant]
  4. ACTOS (TA) [Concomitant]
  5. FAMOTIDINE [Concomitant]
  6. PURSENNID (TA) [Concomitant]
  7. BAYLOTENSIN (NITRENDIPINE) (TA) [Concomitant]
  8. LAMISIL (CR) [Concomitant]
  9. ASTAT (LANOCONAZOLE) (UNK) [Concomitant]
  10. ADOFEED (FLURBIPROFEN) (TTS) [Concomitant]

REACTIONS (5)
  - ATRIAL FIBRILLATION [None]
  - ATRIOVENTRICULAR BLOCK SECOND DEGREE [None]
  - HEMIPLEGIA [None]
  - SLEEP APNOEA SYNDROME [None]
  - TRANSIENT ISCHAEMIC ATTACK [None]
